FAERS Safety Report 6927201-2 (Version None)
Quarter: 2010Q3

REPORT INFORMATION
  Report Type: 
  Country: None (occurrence: None)
  Receive Date: 20100816
  Receipt Date: 20100810
  Transmission Date: 20110219
  Serious: Yes (Death, Hospitalization)
  Sender: FDA-Public Use
  Company Number: JP-ELI_LILLY_AND_COMPANY-JP201007006235

PATIENT
  Sex: Female
  Weight: 52 kg

DRUGS (3)
  1. GEMZAR [Suspect]
     Indication: BREAST CANCER STAGE IV
     Dosage: 800 MG, WEEKLY (1/W)
     Route: 042
     Dates: start: 20100316, end: 20100715
  2. ZOMETA [Concomitant]
     Route: 042
     Dates: start: 20080213
  3. OXYCONTIN [Concomitant]
     Route: 048

REACTIONS (7)
  - ACUTE INTERSTITIAL PNEUMONITIS [None]
  - BACTERIAL INFECTION [None]
  - DEHYDRATION [None]
  - FACE OEDEMA [None]
  - OEDEMA PERIPHERAL [None]
  - PYREXIA [None]
  - RESPIRATORY TRACT INFECTION FUNGAL [None]
